FAERS Safety Report 6616883-0 (Version None)
Quarter: 2010Q1

REPORT INFORMATION
  Report Type: 
  Country: None (occurrence: None)
  Receive Date: 20100301
  Receipt Date: 20100223
  Transmission Date: 20100710
  Serious: Yes (Hospitalization)
  Sender: FDA-Public Use
  Company Number: 2010SP011806

PATIENT
  Age: 21 Year
  Sex: Male

DRUGS (6)
  1. POSACONAZOLE [Suspect]
     Indication: LUNG INFECTION
     Dosage: 200 MG;QID
  2. RIFAMPICIN [Suspect]
     Indication: LUNG INFECTION
  3. MICAFUNGIN (MICAFUNGIN) [Suspect]
     Indication: ANTIFUNGAL PROPHYLAXIS
  4. VANCOMYCIN [Concomitant]
  5. CIPROFLOXACIN [Concomitant]
  6. LINEZOLID [Concomitant]

REACTIONS (4)
  - CONDITION AGGRAVATED [None]
  - DRUG INTERACTION [None]
  - DRUG LEVEL DECREASED [None]
  - LIVER ABSCESS [None]
